FAERS Safety Report 15488718 (Version 1)
Quarter: 2018Q4

REPORT INFORMATION
  Report Type: Spontaneous
  Country: TN (occurrence: TN)
  Receive Date: 20181011
  Receipt Date: 20181011
  Transmission Date: 20190205
  Serious: Yes (Other)
  Sender: FDA-Public Use
  Company Number: TN-GLAXOSMITHKLINE-TN2018183894

PATIENT
  Age: 6 Year
  Sex: Male

DRUGS (1)
  1. TERBINAFINE. [Suspect]
     Active Substance: TERBINAFINE
     Indication: TINEA CAPITIS
     Dosage: 250 MG, QD
     Route: 048

REACTIONS (1)
  - Acute generalised exanthematous pustulosis [Recovering/Resolving]
